FAERS Safety Report 8093986-8 (Version None)
Quarter: 2012Q1

REPORT INFORMATION
  Report Type: 
  Country: None (occurrence: None)
  Receive Date: 20120130
  Receipt Date: 20120119
  Transmission Date: 20120608
  Serious: Yes (Hospitalization, Other)
  Sender: FDA-Public Use
  Company Number: IT-BRISTOL-MYERS SQUIBB COMPANY-16324980

PATIENT
  Age: 62 Year
  Sex: Male

DRUGS (9)
  1. RAMIPRIL [Concomitant]
     Dosage: TRIATEC 2.5 MG TABS
     Route: 048
     Dates: start: 20090320, end: 20110816
  2. ESCITALOPRAM [Concomitant]
     Dosage: ENTACT 10 MG TABS
     Route: 048
     Dates: start: 20081007, end: 20110816
  3. METFORMIN HCL [Concomitant]
     Dosage: METFORMIN 500 MG TABS
     Route: 048
     Dates: start: 20081007, end: 20110816
  4. AMIODARONE HCL [Concomitant]
     Dosage: AMIODARON 200 MG TABS
     Route: 048
     Dates: start: 20081007, end: 20110816
  5. LASIX [Concomitant]
     Dosage: LASIX 25 MG TABS
     Route: 048
     Dates: start: 20081007, end: 20110816
  6. KANRENOL [Concomitant]
     Dosage: KANRENOL 25 MG TABS
     Route: 048
     Dates: start: 20090320, end: 20110816
  7. BISOPROLOL FUMARATE [Concomitant]
     Dosage: CARDICOR 5 MG TABS
     Route: 048
     Dates: start: 20090320, end: 20110816
  8. ALLOPURINOL [Concomitant]
     Dosage: ZYLORIC 300 MG TABS
     Route: 048
     Dates: start: 20090320, end: 20110816
  9. COUMADIN [Suspect]
     Indication: CARDIAC VALVE PROSTHESIS USER
     Dosage: INTERRUPT ON 16AUG2011 RESTART ON 27OCT11.
     Dates: start: 20090320

REACTIONS (3)
  - HAEMORRHAGE [None]
  - FALL [None]
  - SUBDURAL HAEMATOMA [None]
